FAERS Safety Report 6789707-9 (Version None)
Quarter: 2010Q2

REPORT INFORMATION
  Report Type: 
  Country: None (occurrence: None)
  Receive Date: 20100624
  Receipt Date: 20100610
  Transmission Date: 20101027
  Serious: Yes (Other)
  Sender: FDA-Public Use
  Company Number: DE-RANBAXY-2010RR-35002

PATIENT
  Age: 47 Year
  Sex: Female

DRUGS (1)
  1. CLINDAMYCIN [Suspect]
     Indication: BONE DISORDER
     Dosage: 800 MG, BID
     Route: 048

REACTIONS (3)
  - ABDOMINAL PAIN [None]
  - DIARRHOEA [None]
  - DIARRHOEA HAEMORRHAGIC [None]
